FAERS Safety Report 14338303 (Version 3)
Quarter: 2022Q2

REPORT INFORMATION
  Report Type: Spontaneous
  Country: ES (occurrence: ES)
  Receive Date: 20171229
  Receipt Date: 20220627
  Transmission Date: 20220721
  Serious: Yes (Other)
  Sender: FDA-Public Use
  Company Number: None

PATIENT
  Age: 45 Year
  Sex: Male

DRUGS (4)
  1. OMEPRAZOLE [Suspect]
     Active Substance: OMEPRAZOLE
     Indication: HIV infection CDC category A
     Dosage: UNK
  2. EMTRIVA [Interacting]
     Active Substance: EMTRICITABINE
     Indication: HIV infection CDC category A
     Dosage: UNK
  3. ATAZANAVIR SULFATE\RITONAVIR [Interacting]
     Active Substance: ATAZANAVIR SULFATE\RITONAVIR
     Indication: HIV infection CDC category A
     Dosage: UNK
  4. VIREAD [Interacting]
     Active Substance: TENOFOVIR DISOPROXIL FUMARATE
     Indication: HIV infection CDC category A
     Dosage: UNK

REACTIONS (3)
  - Inhibitory drug interaction [Unknown]
  - Drug interaction [Unknown]
  - Blood HIV RNA increased [Recovered/Resolved]
